FAERS Safety Report 14789084 (Version 1)
Quarter: 2018Q2

REPORT INFORMATION
  Report Type: Spontaneous
  Country: GB (occurrence: GB)
  Receive Date: 20180423
  Receipt Date: 20180423
  Transmission Date: 20180711
  Serious: Yes (Other)
  Sender: FDA-Public Use
  Company Number: PHHY2018GB062790

PATIENT
  Age: 79 Year
  Sex: Female

DRUGS (3)
  1. BRIMONIDINE [Suspect]
     Active Substance: BRIMONIDINE TARTRATE
     Indication: OPEN ANGLE GLAUCOMA
     Dosage: 0.2 %, BID (BOTH EYES)
     Route: 061
     Dates: start: 200008
  2. TIMOLOL. [Concomitant]
     Active Substance: TIMOLOL
     Indication: OPEN ANGLE GLAUCOMA
     Dosage: 0.25 %, BID
     Route: 061
     Dates: start: 1998
  3. LATANOPROST. [Concomitant]
     Active Substance: LATANOPROST
     Indication: OPEN ANGLE GLAUCOMA
     Dosage: 0.005 %, UNK
     Route: 061
     Dates: end: 200008

REACTIONS (6)
  - Eye pain [Unknown]
  - Visual impairment [Unknown]
  - Conjunctival follicles [Unknown]
  - Intraocular pressure increased [Unknown]
  - Conjunctival hyperaemia [Unknown]
  - Uveitis [Unknown]
